FAERS Safety Report 6125528 (Version 13)
Quarter: 2013Q4

REPORT INFORMATION
  Report Type: Spontaneous
  Country: US (occurrence: US)
  Receive Date: 20060912
  Receipt Date: 20131212
  Transmission Date: 20140711
  Serious: Yes (Death, Hospitalization, Other)
  Sender: FDA-Public Use
  Company Number: PHEH2006US11225

PATIENT
  Age: 75 Year
  Sex: Male
  Weight: 83.45 kg

DRUGS (21)
  1. AREDIA [Suspect]
     Dosage: 90 MG
     Route: 042
     Dates: start: 20010208, end: 20020124
  2. ZOMETA [Suspect]
     Indication: PLASMA CELL MYELOMA
     Dosage: 4 MG
     Route: 042
     Dates: start: 20020224, end: 20051020
  3. INSULIN [Suspect]
  4. DIOVAN [Concomitant]
  5. ACIPHEX [Concomitant]
  6. ASPIRIN ^BAYER^ [Concomitant]
  7. PLAVIX [Concomitant]
  8. ZOCOR ^DIECKMANN^ [Concomitant]
  9. RESTORIL [Concomitant]
  10. METFORMIN [Concomitant]
  11. AVANDIA [Concomitant]
  12. NORVASC                                 /DEN/ [Concomitant]
  13. FELODIPINE [Concomitant]
  14. VASOTEC [Concomitant]
  15. ECOTRIN [Concomitant]
  16. METOPROLOL [Concomitant]
  17. NEXIUM [Concomitant]
  18. HYDROCHLOROTHIAZIDE [Concomitant]
  19. CLONIDINE [Concomitant]
     Dosage: 0.1 MG, UNK
     Route: 048
  20. ATIVAN [Concomitant]
     Dosage: 1 MG, UNK
     Route: 048
  21. MONOPRIL [Concomitant]
     Dosage: 10 MG, QD
     Route: 048

REACTIONS (80)
  - Death [Fatal]
  - Coronary artery disease [Unknown]
  - Ischaemia [Unknown]
  - Left ventricular hypertrophy [Unknown]
  - Dizziness [Unknown]
  - Aortic valve incompetence [Unknown]
  - Pulmonary valve incompetence [Unknown]
  - Syncope [Unknown]
  - Arteriosclerosis [Unknown]
  - Angina pectoris [Unknown]
  - Mitral valve incompetence [Unknown]
  - Myocardial infarction [Unknown]
  - Osteonecrosis of jaw [Unknown]
  - General physical health deterioration [Unknown]
  - Pain [Unknown]
  - Anxiety [Unknown]
  - Decreased interest [Unknown]
  - Osteitis [Unknown]
  - Type 1 diabetes mellitus [Unknown]
  - Hyperlipidaemia [Unknown]
  - Hypertension [Unknown]
  - Dyspnoea exertional [Unknown]
  - Bronchitis chronic [Unknown]
  - Pleural fibrosis [Unknown]
  - Chronic obstructive pulmonary disease [Unknown]
  - Gastrooesophageal reflux disease [Unknown]
  - Tricuspid valve incompetence [Unknown]
  - Cardiac murmur [Unknown]
  - Exposed bone in jaw [Unknown]
  - Impaired healing [Unknown]
  - Emphysema [Unknown]
  - Gingivitis [Unknown]
  - Bone loss [Unknown]
  - Haemorrhage [Unknown]
  - Loss of consciousness [Unknown]
  - Hypoglycaemia [Unknown]
  - VIIth nerve paralysis [Unknown]
  - Hypoaesthesia [Unknown]
  - Thrombocytopenia [Unknown]
  - Vision blurred [Unknown]
  - Intestinal obstruction [Unknown]
  - Convulsion [Unknown]
  - Atrial fibrillation [Unknown]
  - Respiratory acidosis [Unknown]
  - Respiratory failure [Unknown]
  - Atelectasis [Unknown]
  - Periventricular leukomalacia [Unknown]
  - Lung infiltration [Unknown]
  - Swelling [Unknown]
  - Osteomyelitis bacterial [Unknown]
  - Lymphadenopathy [Unknown]
  - Neurodegenerative disorder [Unknown]
  - Diabetic ketoacidosis [Unknown]
  - Oliguria [Unknown]
  - Fall [Unknown]
  - Rib fracture [Unknown]
  - Obstructive airways disorder [Unknown]
  - Osteorrhagia [Unknown]
  - Generalised oedema [Unknown]
  - Hypoalbuminaemia [Unknown]
  - Oedema [Unknown]
  - Joint effusion [Unknown]
  - Osteolysis [Unknown]
  - Spinal deformity [Unknown]
  - Gastrointestinal haemorrhage [Unknown]
  - Hiatus hernia [Unknown]
  - Gastritis [Unknown]
  - Pancreatitis [Unknown]
  - Haematemesis [Unknown]
  - Renal failure acute [Unknown]
  - Pulmonary embolism [Unknown]
  - Urinary tract infection [Unknown]
  - Pleural effusion [Unknown]
  - Haematuria [Unknown]
  - Vascular calcification [Unknown]
  - Pneumonia [Unknown]
  - Cardiomegaly [Unknown]
  - Ileus [Unknown]
  - Respiratory tract congestion [Unknown]
  - Oesophageal candidiasis [Unknown]
